FAERS Safety Report 10734048 (Version 6)
Quarter: 2015Q3

REPORT INFORMATION
  Report Type: Spontaneous
  Country: US (occurrence: US)
  Receive Date: 20150123
  Receipt Date: 20150715
  Transmission Date: 20151125
  Serious: Yes (Other)
  Sender: FDA-Public Use
  Company Number: US-GLAXOSMITHKLINE-US2014GSK048166

PATIENT
  Sex: Male

DRUGS (3)
  1. VOTRIENT [Suspect]
     Active Substance: PAZOPANIB HYDROCHLORIDE
     Indication: RENAL CANCER
     Dosage: 800 MG, QD
     Route: 065
     Dates: start: 20141115, end: 20141124
  2. VOTRIENT [Suspect]
     Active Substance: PAZOPANIB HYDROCHLORIDE
     Indication: RENAL CANCER
  3. VOTRIENT [Suspect]
     Active Substance: PAZOPANIB HYDROCHLORIDE
     Indication: NEOPLASM MALIGNANT
     Dosage: 600 MG, QD
     Dates: start: 20141216

REACTIONS (13)
  - Neoplasm [Not Recovered/Not Resolved]
  - Peripheral swelling [Recovered/Resolved]
  - Blood pressure increased [Recovered/Resolved]
  - Chromaturia [Not Recovered/Not Resolved]
  - Diarrhoea [Unknown]
  - Haemorrhage urinary tract [Recovered/Resolved]
  - Pain [Not Recovered/Not Resolved]
  - Musculoskeletal chest pain [Unknown]
  - Rash [Recovered/Resolved]
  - Inappropriate schedule of drug administration [Unknown]
  - Blood urine present [Unknown]
  - Pruritus [Recovered/Resolved]
  - Back pain [Unknown]
